FAERS Safety Report 5077575-5 (Version None)
Quarter: 2006Q3

REPORT INFORMATION
  Report Type: 
  Country: None (occurrence: None)
  Receive Date: 20060810
  Receipt Date: 20060411
  Transmission Date: 20061208
  Serious: No
  Sender: FDA-Public Use
  Company Number: US-GLAXOSMITHKLINE-A0601386A

PATIENT
  Age: 42 Year
  Sex: Female

DRUGS (3)
  1. PAXIL [Suspect]
     Dosage: 20MG PER DAY
     Route: 048
     Dates: start: 20060407, end: 20060411
  2. PROCARDIA [Concomitant]
  3. ZESTRIL [Concomitant]
     Indication: BLOOD PRESSURE
     Dosage: 10MG PER DAY

REACTIONS (6)
  - BLOOD PRESSURE INCREASED [None]
  - DECREASED APPETITE [None]
  - FEELING HOT [None]
  - HEART RATE INCREASED [None]
  - NAUSEA [None]
  - RETCHING [None]
